FAERS Safety Report 7282010-2 (Version None)
Quarter: 2011Q1

REPORT INFORMATION
  Report Type: 
  Country: None (occurrence: None)
  Receive Date: 20110208
  Receipt Date: 20110126
  Transmission Date: 20110831
  Serious: Yes (Life-Threatening, Hospitalization)
  Sender: FDA-Public Use
  Company Number: BE-CELGENEUS-013-C5013-08070246

PATIENT
  Sex: Female
  Weight: 48 kg

DRUGS (8)
  1. ZANTAC [Concomitant]
     Route: 065
  2. MELPHALAN [Suspect]
     Indication: MULTIPLE MYELOMA
     Route: 048
     Dates: start: 20080424, end: 20080719
  3. FLUDROCORTISONE [Concomitant]
     Route: 065
  4. CC-5013 [Suspect]
     Indication: MULTIPLE MYELOMA
     Route: 048
     Dates: start: 20080424, end: 20080729
  5. NEULASTA [Concomitant]
     Indication: NEUTROPENIA
     Route: 065
     Dates: start: 20080626
  6. FOLIC ACID [Concomitant]
     Route: 065
  7. PREDNISONE [Suspect]
     Indication: MULTIPLE MYELOMA
     Route: 048
     Dates: start: 20080424, end: 20080719
  8. CLEXANE [Concomitant]
     Route: 065

REACTIONS (1)
  - RENAL FAILURE ACUTE [None]
